FAERS Safety Report 8415887-5 (Version None)
Quarter: 2012Q2

REPORT INFORMATION
  Report Type: 
  Country: None (occurrence: None)
  Receive Date: 20120530
  Receipt Date: 20120514
  Transmission Date: 20120825
  Serious: Yes (Other)
  Sender: FDA-Public Use
  Company Number: JPI-P-021456

PATIENT
  Age: 55 Year
  Sex: Female
  Weight: 69 kg

DRUGS (3)
  1. VALPROATE SODIUM [Concomitant]
  2. LUVOX CR [Suspect]
     Indication: OBSESSIVE-COMPULSIVE DISORDER
     Dosage: 150 MG (150 MG, 1 IN 1 D)ORAL
     Route: 048
  3. CLOZAPINE [Suspect]
     Indication: PRODUCT USED FOR UNKNOWN INDICATION
     Dosage: 50 MG (50 MG, 1 IN 1 D), ORAL
     Route: 048

REACTIONS (9)
  - PALPITATIONS [None]
  - MULTIPLE SCLEROSIS [None]
  - DRUG INTERACTION [None]
  - LONG QT SYNDROME [None]
  - CONDITION AGGRAVATED [None]
  - SCHIZOPHRENIA [None]
  - TACHYCARDIA [None]
  - NO THERAPEUTIC RESPONSE [None]
  - HYPOKALAEMIA [None]
